FAERS Safety Report 9580449 (Version 1)
Quarter: 2013Q4

REPORT INFORMATION
  Report Type: Other
  Country: RO (occurrence: RO)
  Receive Date: 20131002
  Receipt Date: 20131002
  Transmission Date: 20140711
  Serious: Yes (Hospitalization, Other)
  Sender: FDA-Public Use
  Company Number: RO-FRI-1000049140

PATIENT
  Age: 81 Year
  Sex: Female

DRUGS (4)
  1. DILTIAZEM [Suspect]
     Indication: HYPERTENSION
     Dosage: 5.6 G
  2. DILTIAZEM [Suspect]
     Indication: MYOCARDIAL ISCHAEMIA
  3. INDAPAMIDE [Suspect]
     Indication: HYPERTENSION
     Dosage: 240 MG
  4. INDAPAMIDE [Suspect]
     Indication: MYOCARDIAL ISCHAEMIA

REACTIONS (6)
  - Suicide attempt [Recovered/Resolved]
  - Intentional overdose [Recovered/Resolved]
  - Metabolic acidosis [Recovered/Resolved]
  - Sinus bradycardia [Unknown]
  - Hyperglycaemia [Unknown]
  - Atrioventricular block second degree [Unknown]
